FAERS Safety Report 9768081 (Version 1)
Quarter: 2013Q4

REPORT INFORMATION
  Report Type: Spontaneous
  Country: US (occurrence: US)
  Receive Date: 20131217
  Receipt Date: 20131217
  Transmission Date: 20140711
  Serious: No
  Sender: FDA-Public Use
  Company Number: US-009507513-1310USA015058

PATIENT
  Age: 39 Year
  Sex: Female

DRUGS (2)
  1. NUVARING [Suspect]
     Indication: CONTRACEPTION
     Dosage: .015/.12/3 WKS CONTINUOUS USE, FOLLOWED BY 1 WK RING-FREE PERIOD
     Route: 067
     Dates: start: 201301, end: 201310
  2. NUVARING [Suspect]
     Indication: MENORRHAGIA

REACTIONS (4)
  - Drug prescribing error [Unknown]
  - Inappropriate schedule of drug administration [Unknown]
  - Device expulsion [Unknown]
  - Off label use [Unknown]
